FAERS Safety Report 16565057 (Version 1)
Quarter: 2019Q3

REPORT INFORMATION
  Report Type: Spontaneous
  Country: US (occurrence: US)
  Receive Date: 20190711
  Receipt Date: 20190711
  Transmission Date: 20191004
  Serious: Yes (Other)
  Sender: FDA-Public Use
  Company Number: None

PATIENT
  Age: 25 Year
  Sex: Female
  Weight: 120.15 kg

DRUGS (1)
  1. PREDNISONE. [Suspect]
     Active Substance: PREDNISONE
     Indication: POLYCHONDRITIS
     Route: 048
     Dates: start: 20190624, end: 20190709

REACTIONS (2)
  - Product substitution issue [None]
  - Blood glucose decreased [None]

NARRATIVE: CASE EVENT DATE: 20190624
